FAERS Safety Report 7242802-2 (Version None)
Quarter: 2011Q1

REPORT INFORMATION
  Report Type: 
  Country: None (occurrence: None)
  Receive Date: 20110125
  Receipt Date: 20110120
  Transmission Date: 20110831
  Serious: Yes (Death)
  Sender: FDA-Public Use
  Company Number: JP-TYCO HEALTHCARE/MALLINCKRODT-T201002297

PATIENT
  Age: 79 Year
  Sex: Male
  Weight: 61.3 kg

DRUGS (9)
  1. OPTIRAY 350 [Suspect]
     Indication: ARTERIOGRAM CORONARY
     Dosage: 3 ML, SINGLE
     Route: 013
     Dates: start: 20101116, end: 20101116
  2. HEPARIN [Concomitant]
     Indication: ANTICOAGULANT THERAPY
     Dosage: 3 ML, QD
     Route: 042
     Dates: start: 20101116, end: 20101116
  3. ASPIRIN [Concomitant]
     Indication: MYOCARDIAL INFARCTION
     Dosage: 100 MG, QD
     Route: 048
     Dates: end: 20101115
  4. GLIBENCLAMIDE [Concomitant]
     Indication: DIABETES MELLITUS
     Dosage: 1.25 MG, QD
     Route: 048
     Dates: end: 20101115
  5. FAMOTIDINE [Concomitant]
     Dosage: 20 MG, QD
     Route: 048
     Dates: end: 20101115
  6. CLOPIDOGREL SULFATE [Concomitant]
     Indication: MYOCARDIAL INFARCTION
     Dosage: 75 MG, QD
     Route: 048
     Dates: end: 20101115
  7. ATORVASTATIN CALCIUM [Concomitant]
     Indication: HYPERLIPIDAEMIA
     Dosage: 10 MG, QD
     Route: 048
     Dates: end: 20101115
  8. SITAGLIPTIN PHOSPHATE [Concomitant]
     Indication: DIABETES MELLITUS
     Dosage: 50 MG, QD
     Route: 048
     Dates: end: 20101115
  9. LIDOCAINE HYDROCHLORIDE MONOHYDRATE [Concomitant]
     Indication: LOCAL ANAESTHESIA
     Dosage: 3 ML, QD
     Route: 058
     Dates: start: 20101116, end: 20101116

REACTIONS (1)
  - SHOCK [None]
